FAERS Safety Report 20763546 (Version 1)
Quarter: 2022Q2

REPORT INFORMATION
  Report Type: Spontaneous
  Country: US (occurrence: US)
  Receive Date: 20220428
  Receipt Date: 20220428
  Transmission Date: 20220721
  Serious: Yes (Death)
  Sender: FDA-Public Use
  Company Number: US-NOVARTISPH-NVSC2022US098315

PATIENT
  Sex: Female

DRUGS (1)
  1. VOTRIENT [Suspect]
     Active Substance: PAZOPANIB HYDROCHLORIDE
     Indication: Urinary tract infection
     Dosage: 800 MG, QD
     Route: 048
     Dates: start: 202203

REACTIONS (2)
  - Death [Fatal]
  - Product use in unapproved indication [Unknown]
